FAERS Safety Report 8519410 (Version 2)
Quarter: 2012Q4

REPORT INFORMATION
  Report Type: 
  Country: US (occurrence: US)
  Receive Date: 20120418
  Receipt Date: 20121029
  Transmission Date: 20130627
  Serious: Yes (Hospitalization)
  Sender: FDA-Public Use
  Company Number: US-ACTELION-A-US2012-63969

PATIENT
  Age: 55 Year
  Sex: Male

DRUGS (2)
  1. TRACLEER [Suspect]
     Indication: PULMONARY ARTERIAL HYPERTENSION
     Dosage: UNK
     Route: 048
     Dates: start: 201203
  2. ADCIRCA [Concomitant]

REACTIONS (4)
  - Urinary retention [Unknown]
  - Fluid retention [Unknown]
  - Condition aggravated [Unknown]
  - Right ventricular failure [Unknown]
